FAERS Safety Report 6347441-3 (Version None)
Quarter: 2009Q3

REPORT INFORMATION
  Report Type: 
  Country: None (occurrence: None)
  Receive Date: 20090910
  Receipt Date: 20090831
  Transmission Date: 20100115
  Serious: Yes (Other)
  Sender: FDA-Public Use
  Company Number: US-ABBOTT-09P-163-0585496-00

PATIENT
  Sex: Male
  Weight: 131.66 kg

DRUGS (1)
  1. SYNTHROID [Suspect]
     Indication: HYPOTHYROIDISM
     Route: 048
     Dates: start: 19990101, end: 20090601

REACTIONS (6)
  - DIZZINESS [None]
  - GASTRIC PH DECREASED [None]
  - HEADACHE [None]
  - HYPERHIDROSIS [None]
  - MALAISE [None]
  - OROPHARYNGEAL PAIN [None]
